FAERS Safety Report 9009860 (Version 1)
Quarter: 2013Q1

REPORT INFORMATION
  Report Type: Spontaneous
  Country: US (occurrence: US)
  Receive Date: 20130110
  Receipt Date: 20130110
  Transmission Date: 20140127
  Serious: Yes (Life-Threatening, Other)
  Sender: FDA-Public Use
  Company Number: US-009507513-1004USA01813

PATIENT
  Age: 7 Year
  Sex: Female
  Weight: 31.3 kg

DRUGS (1)
  1. SINGULAIR [Suspect]
     Indication: ASTHMA
     Dosage: 5 MG, QD
     Route: 048

REACTIONS (11)
  - Aggression [Recovering/Resolving]
  - Anxiety [Recovering/Resolving]
  - Depressed mood [Recovering/Resolving]
  - Feeling guilty [Recovering/Resolving]
  - Hallucination, auditory [Recovering/Resolving]
  - Hallucination, visual [Recovering/Resolving]
  - Homicidal ideation [Recovering/Resolving]
  - Morbid thoughts [Recovering/Resolving]
  - Sleep terror [Recovering/Resolving]
  - Suicidal ideation [Recovering/Resolving]
  - Adverse event [Unknown]
